FAERS Safety Report 9239822 (Version 1)
Quarter: 2013Q2

REPORT INFORMATION
  Report Type: Spontaneous
  Country: US (occurrence: US)
  Receive Date: 20130418
  Receipt Date: 20130418
  Transmission Date: 20140414
  Serious: No
  Sender: FDA-Public Use
  Company Number: US-009507513-1304USA007552

PATIENT
  Sex: Female

DRUGS (1)
  1. PEPCID [Suspect]
     Dosage: 2 TABLETS
     Route: 048

REACTIONS (1)
  - Benzodiazepine drug level [Unknown]
